FAERS Safety Report 26088186 (Version 1)
Quarter: 2025Q4

REPORT INFORMATION
  Report Type: Spontaneous
  Country: US (occurrence: US)
  Receive Date: 20251125
  Receipt Date: 20251125
  Transmission Date: 20260118
  Serious: No
  Sender: TELIX PHARMACEUTICALS
  Company Number: US-TLX-2025000055

PATIENT
  Age: 76 Year
  Sex: Male
  Weight: 97.98 kg

DRUGS (4)
  1. ILLUCCIX [Suspect]
     Active Substance: GALLIUM GA-68 GOZETOTIDE
     Indication: Diagnostic procedure
     Dosage: REQUESTED DOSE: 5.0 MCI?DISPENSED DOSE: 5.2 MCI?VOLUME: 6.4 ML?CALIBRATION TIME: 12:00 PM
     Route: 040
     Dates: start: 20250613, end: 20250613
  2. LUPRON [Concomitant]
     Active Substance: LEUPROLIDE ACETATE
     Indication: Prostate cancer
  3. XTANDI [Concomitant]
     Active Substance: ENZALUTAMIDE
     Indication: Prostate cancer
     Dosage: INCREASED XTANDI FROM 2 PILLS TO 4 PILLS.
  4. XTANDI [Concomitant]
     Active Substance: ENZALUTAMIDE
     Indication: Prostate cancer
     Dosage: INCREASED XTANDI FROM 2 PILLS TO 4 PILLS

REACTIONS (2)
  - Retching [Recovered/Resolved]
  - Vomiting [Recovered/Resolved]

NARRATIVE: CASE EVENT DATE: 20250613
